FAERS Safety Report 23067473 (Version 1)
Quarter: 2023Q4

REPORT INFORMATION
  Report Type: Spontaneous
  Country: ES (occurrence: ES)
  Receive Date: 20231016
  Receipt Date: 20231016
  Transmission Date: 20240109
  Serious: Yes (Other)
  Sender: FDA-Public Use
  Company Number: None

PATIENT
  Age: 82 Year
  Sex: Female

DRUGS (16)
  1. ELIQUIS [Concomitant]
     Active Substance: APIXABAN
     Indication: Atrial fibrillation
     Dosage: 2,5 MG FILM COATED PILLS, 60 TABLETS
     Route: 048
     Dates: start: 20230606
  2. ASCORBIC ACID\POTASSIUM BICARBONATE [Concomitant]
     Active Substance: ASCORBIC ACID\POTASSIUM BICARBONATE
     Indication: Hypokalaemia
     Dosage: 10.0 MEQ EFFERVESCENT PILLS, 50 TABLETS
     Route: 048
     Dates: start: 20190719
  3. PARACETAMOL KERN [Concomitant]
     Indication: Product used for unknown indication
     Dosage: 1 G GENERIC EQUIVALENT PROMIDES, 40 TABLETS
     Route: 048
     Dates: start: 20141125
  4. FUROSEMIDE [Concomitant]
     Active Substance: FUROSEMIDE
     Indication: Cardiac failure
     Dosage: 40.0 MG DECO, TABLETS EFG, 30 TABLETS
     Route: 048
     Dates: start: 20170922
  5. INSULIN GLARGINE [Concomitant]
     Active Substance: INSULIN GLARGINE
     Indication: Diabetes mellitus
     Dosage: 20.0 UI C/24 H
     Route: 058
     Dates: start: 20230420
  6. ATORVASTATIN CALCIUM [Concomitant]
     Active Substance: ATORVASTATIN CALCIUM
     Indication: Hyperlipidaemia
     Dosage: 30.0 MG DE, FILM COATED PILLS, 28 TABLETS
     Route: 048
     Dates: start: 20160924
  7. BISOPROLOL FUMARATE [Concomitant]
     Active Substance: BISOPROLOL FUMARATE
     Indication: Atrial fibrillation
     Dosage: 2.5 MG DE
     Route: 048
     Dates: start: 20161223
  8. LISINOPRIL CINFA [LISINOPRIL] [Concomitant]
     Indication: Essential hypertension
     Dosage: 20.0 MG DE
     Route: 048
     Dates: start: 20190212
  9. CHOLECALCIFEROL [Concomitant]
     Active Substance: CHOLECALCIFEROL
     Indication: Vitamin D decreased
     Dosage: 50,000 IU HARD CAPSULES , 2 CAPSULES
     Route: 048
     Dates: start: 20230315
  10. RISPERIDONE [Concomitant]
     Active Substance: RISPERIDONE
     Indication: Hallucination
     Dosage: 0.5 MG CE, POCKET COATED CAPSULES GENERIC EQUIVALENT, 56 TABLETS
     Route: 048
     Dates: start: 20221017
  11. RYBELSUS [Suspect]
     Active Substance: SEMAGLUTIDE
     Indication: Diabetes mellitus
     Dosage: 3.0 MG C/24 H AM
     Route: 048
     Dates: start: 20230920
  12. OMEPRAZOLE [Concomitant]
     Active Substance: OMEPRAZOLE
     Indication: Irritable bowel syndrome
     Dosage: 20.0 MG A-DE
     Route: 048
     Dates: start: 20141008
  13. OTILONIUM BROMIDE [Concomitant]
     Active Substance: OTILONIUM BROMIDE
     Indication: Irritable bowel syndrome
     Dosage: 40.0 MG A-DECE
     Route: 048
     Dates: start: 20090625
  14. TRAMADOL HYDROCHLORIDE [Concomitant]
     Active Substance: TRAMADOL HYDROCHLORIDE
     Indication: Arthralgia
     Dosage: 50.0 MG C/12 H
     Route: 048
     Dates: start: 20230601
  15. BISOPROLOL [Concomitant]
     Active Substance: BISOPROLOL\BISOPROLOL FUMARATE
     Indication: Atrial fibrillation
     Dosage: 1.25 MG CLINICAL CONTAINER
     Route: 048
     Dates: start: 20180119
  16. FLUOXETINE HYDROCHLORIDE [Concomitant]
     Active Substance: FLUOXETINE HYDROCHLORIDE
     Indication: Depression
     Dosage: 20.0 MG DECE, HARD CAPSULES EFG , 60 CAPSULES
     Route: 048
     Dates: start: 20090625

REACTIONS (1)
  - Hallucination [Unknown]

NARRATIVE: CASE EVENT DATE: 20230920
